FAERS Safety Report 5995579-2 (Version None)
Quarter: 2008Q4

REPORT INFORMATION
  Report Type: 
  Country: None (occurrence: None)
  Receive Date: 20081212
  Receipt Date: 20081001
  Transmission Date: 20090506
  Serious: No
  Sender: FDA-Public Use
  Company Number: US-ABBOTT-08P-163-0479259-00

PATIENT
  Sex: Female
  Weight: 65.83 kg

DRUGS (2)
  1. HUMIRA [Suspect]
     Indication: CROHN'S DISEASE
     Route: 058
     Dates: start: 20080301
  2. MESALAMINE [Concomitant]
     Indication: CROHN'S DISEASE
     Dates: start: 20060101

REACTIONS (2)
  - ACCIDENTAL EXPOSURE [None]
  - INJECTION SITE IRRITATION [None]
